FAERS Safety Report 14168834 (Version 1)
Quarter: 2017Q4

REPORT INFORMATION
  Report Type: Spontaneous
  Country: US (occurrence: None)
  Receive Date: 20171107
  Receipt Date: 20171107
  Transmission Date: 20180321
  Serious: Yes (Hospitalization)
  Sender: FDA-Public Use
  Company Number: None

PATIENT
  Sex: Male

DRUGS (27)
  1. ZORTRESS [Suspect]
     Active Substance: EVEROLIMUS
     Indication: RENAL TRANSPLANT
     Route: 048
     Dates: start: 20170309
  2. GENERLAC [Concomitant]
     Active Substance: LACTULOSE
  3. AMLODIPINE [Concomitant]
     Active Substance: AMLODIPINE BESYLATE
  4. DRONABINOL. [Concomitant]
     Active Substance: DRONABINOL
  5. ONDANSETRON [Concomitant]
     Active Substance: ONDANSETRON
  6. HYDROCO/APAP [Concomitant]
     Active Substance: ACETAMINOPHEN\HYDROCODONE
  7. FAMOTIDINE. [Concomitant]
     Active Substance: FAMOTIDINE
  8. AMIODARONE [Concomitant]
     Active Substance: AMIODARONE
  9. ALLOPURINOL. [Concomitant]
     Active Substance: ALLOPURINOL
  10. PROCHLORPERAZINE. [Concomitant]
     Active Substance: PROCHLORPERAZINE
  11. MYCOPHENOLATE 250 MG [Suspect]
     Active Substance: MYCOPHENOLIC ACID
     Indication: RENAL TRANSPLANT
     Route: 048
     Dates: start: 20170408
  12. CALCITRIOL. [Concomitant]
     Active Substance: CALCITRIOL
  13. KCL [Concomitant]
     Active Substance: POTASSIUM CHLORIDE
  14. ROSUVASTATIN. [Concomitant]
     Active Substance: ROSUVASTATIN
  15. LOSARTAN. [Concomitant]
     Active Substance: LOSARTAN
  16. LIDOCAINE. [Concomitant]
     Active Substance: LIDOCAINE
  17. METOPROLOL. [Concomitant]
     Active Substance: METOPROLOL
  18. FINASTERIDE. [Concomitant]
     Active Substance: FINASTERIDE
  19. PANTOPRAZOLE [Concomitant]
     Active Substance: PANTOPRAZOLE
  20. FERROUS SULF [Concomitant]
     Active Substance: FERROUS SULFATE
  21. FA [Concomitant]
  22. D [Concomitant]
  23. NAHCO3 [Concomitant]
     Active Substance: SODIUM BICARBONATE
  24. NYSTATIN. [Concomitant]
     Active Substance: NYSTATIN
  25. GLUCOS/CHOND [Concomitant]
  26. TORSEMIDE. [Concomitant]
     Active Substance: TORSEMIDE
  27. TAMSULOSIN [Concomitant]
     Active Substance: TAMSULOSIN

REACTIONS (1)
  - Hospitalisation [None]

NARRATIVE: CASE EVENT DATE: 2017
